FAERS Safety Report 7589619-7 (Version None)
Quarter: 2011Q3

REPORT INFORMATION
  Report Type: 
  Country: None (occurrence: None)
  Receive Date: 20110705
  Receipt Date: 20110620
  Transmission Date: 20111222
  Serious: Yes (Other)
  Sender: FDA-Public Use
  Company Number: GB-WATSON-2011-09697

PATIENT
  Age: 70 Year
  Sex: Female

DRUGS (2)
  1. CIPROFLOXACIN HCL [Suspect]
     Indication: GROIN INFECTION
     Dosage: 500 MG, BID
     Route: 048
  2. PREDNISOLONE [Suspect]
     Indication: ASTHMA
     Dosage: 10 TO 30 MG, DAILY
     Route: 048

REACTIONS (4)
  - ESCHERICHIA INFECTION [None]
  - GRANULOMA [None]
  - BACTERIAL INFECTION [None]
  - NAUSEA [None]
